FAERS Safety Report 7637067-3 (Version None)
Quarter: 2011Q3

REPORT INFORMATION
  Report Type: 
  Country: None (occurrence: None)
  Receive Date: 20110726
  Receipt Date: 20100907
  Transmission Date: 20111222
  Serious: No
  Sender: FDA-Public Use
  Company Number: US-MYLANLABS-2010S1012685

PATIENT
  Age: 56 Year
  Sex: Male

DRUGS (3)
  1. BUPROPION HCL [Concomitant]
     Dates: start: 20100702
  2. PAROXETINE HCL [Suspect]
     Route: 048
  3. PAROXETINE HCL [Concomitant]
     Dates: start: 20100629

REACTIONS (2)
  - DYSGEUSIA [None]
  - NAUSEA [None]
